FAERS Safety Report 11057932 (Version 2)
Quarter: 2015Q2

REPORT INFORMATION
  Report Type: Spontaneous
  Country: US (occurrence: US)
  Receive Date: 20150423
  Receipt Date: 20150601
  Transmission Date: 20150821
  Serious: No
  Sender: FDA-Public Use
  Company Number: US-ASTRAZENECA-2007BM14749

PATIENT
  Age: 20602 Day
  Sex: Female
  Weight: 82.6 kg

DRUGS (9)
  1. BYETTA [Suspect]
     Active Substance: EXENATIDE
     Indication: TYPE 2 DIABETES MELLITUS
     Route: 058
     Dates: start: 200708
  2. METFORMIN [Concomitant]
     Active Substance: METFORMIN HYDROCHLORIDE
     Indication: TYPE 2 DIABETES MELLITUS
     Dosage: METFORMIN ER
     Route: 048
     Dates: start: 2008
  3. METFORMIN [Concomitant]
     Active Substance: METFORMIN HYDROCHLORIDE
     Indication: TYPE 2 DIABETES MELLITUS
  4. IRBESARTAN. [Concomitant]
     Active Substance: IRBESARTAN
     Indication: HYPERTENSION
     Route: 048
     Dates: start: 201312
  5. BYDUREON [Suspect]
     Active Substance: EXENATIDE
     Indication: TYPE 2 DIABETES MELLITUS
     Dosage: 2 MG 4 COUNT, 2 UG, ONCE A WEEK
     Route: 058
     Dates: start: 20150413
  6. AMLODIPINE [Concomitant]
     Active Substance: AMLODIPINE BESYLATE
     Indication: HYPERTENSION
     Route: 048
     Dates: start: 201407
  7. VICTOZA [Concomitant]
     Active Substance: LIRAGLUTIDE
  8. BYDUREON [Suspect]
     Active Substance: EXENATIDE
     Indication: TYPE 2 DIABETES MELLITUS
     Dosage: 2 MG 4 COUNT, 2 UG, ONCE A WEEK
     Route: 058
     Dates: start: 20150411
  9. ATORVASTATIN [Concomitant]
     Active Substance: ATORVASTATIN
     Indication: HYPERLIPIDAEMIA
     Route: 048
     Dates: start: 201304

REACTIONS (4)
  - Hypoglycaemia [Unknown]
  - Injection site extravasation [Recovered/Resolved]
  - Underdose [Unknown]
  - Adverse event [Unknown]

NARRATIVE: CASE EVENT DATE: 20070905
